FAERS Safety Report 7765422-X (Version None)
Quarter: 2011Q3

REPORT INFORMATION
  Report Type: 
  Country: None (occurrence: None)
  Receive Date: 20110916
  Receipt Date: 20110831
  Transmission Date: 20111222
  Serious: Yes (Other)
  Sender: FDA-Public Use
  Company Number: 2011P1008666

PATIENT
  Age: 55 Year
  Sex: Female
  Weight: 77.1115 kg

DRUGS (5)
  1. TERCONAZOLE [Suspect]
     Indication: VULVOVAGINAL MYCOTIC INFECTION
     Dosage: 1 APPLICATOR;QHS;VAG
     Route: 067
     Dates: start: 20110801, end: 20110801
  2. PRILOSEC [Concomitant]
  3. BISMUTH SUBSALICYLATE [Suspect]
     Indication: ABDOMINAL PAIN UPPER
  4. MONOPRIL [Concomitant]
  5. XANAX [Concomitant]

REACTIONS (16)
  - ERYTHEMA [None]
  - RASH PAPULAR [None]
  - SELF-MEDICATION [None]
  - ANXIETY [None]
  - PRURITUS [None]
  - DIARRHOEA [None]
  - JOINT RANGE OF MOTION DECREASED [None]
  - SKIN TIGHTNESS [None]
  - SKIN INDURATION [None]
  - BURNS SECOND DEGREE [None]
  - DRUG HYPERSENSITIVITY [None]
  - SWELLING FACE [None]
  - COUGH [None]
  - ABDOMINAL PAIN UPPER [None]
  - SCAR [None]
  - SKIN EXFOLIATION [None]
